FAERS Safety Report 14383360 (Version 1)
Quarter: 2018Q1

REPORT INFORMATION
  Report Type: Spontaneous
  Country: US (occurrence: US)
  Receive Date: 20180115
  Receipt Date: 20180115
  Transmission Date: 20180509
  Serious: No
  Sender: FDA-Public Use
  Company Number: US-009507513-1801USA000253

PATIENT
  Age: 57 Year
  Sex: Female
  Weight: 77 kg

DRUGS (2)
  1. TEMODAR [Suspect]
     Active Substance: TEMOZOLOMIDE
     Indication: GASTROINTESTINAL MELANOMA
     Dosage: UNK, WEEKLY
  2. CISPLATIN. [Concomitant]
     Active Substance: CISPLATIN
     Indication: GASTROINTESTINAL MELANOMA
     Dosage: UNK, WEEKLY

REACTIONS (1)
  - Off label use [Unknown]
